FAERS Safety Report 8195718-1 (Version None)
Quarter: 2012Q1

REPORT INFORMATION
  Report Type: 
  Country: None (occurrence: None)
  Receive Date: 20120308
  Receipt Date: 20120302
  Transmission Date: 20120608
  Serious: Yes (Disabling)
  Sender: FDA-Public Use
  Company Number: US-BAYER-2012-021766

PATIENT

DRUGS (1)
  1. ALEVE (CAPLET) [Suspect]
     Indication: BACK PAIN
     Dosage: CONSUMER TOOK 20 ALEVE ON THAT DAY.
     Route: 048
     Dates: start: 20120302

REACTIONS (2)
  - BACK PAIN [None]
  - GAIT DISTURBANCE [None]
